FAERS Safety Report 6724859-8 (Version None)
Quarter: 2010Q2

REPORT INFORMATION
  Report Type: 
  Country: None (occurrence: None)
  Receive Date: 20100513
  Receipt Date: 20100513
  Transmission Date: 20101027
  Serious: Yes (Other)
  Sender: FDA-Public Use
  Company Number: None

PATIENT
  Sex: Male
  Weight: 108.6 kg

DRUGS (6)
  1. SIMVASTATIN [Suspect]
     Dosage: 40 MG DAILY ORAL
     Route: 048
     Dates: start: 20061201, end: 20070701
  2. ZOCOR [Suspect]
     Dosage: I MG SAME DAILY ORAL
     Route: 048
     Dates: start: 20060101, end: 20070101
  3. PRINIVIL [Concomitant]
  4. SYNTHROID [Concomitant]
  5. VITAMIN E [Concomitant]
  6. K-DUR [Concomitant]

REACTIONS (1)
  - BLOOD CREATINE PHOSPHOKINASE INCREASED [None]
